FAERS Safety Report 9767947 (Version 1)
Quarter: 2013Q3

REPORT INFORMATION
  Report Type: Spontaneous
  Country: US (occurrence: None)
  Receive Date: 20130826
  Receipt Date: 20130826
  Transmission Date: 20140515
  Serious: Yes (Other)
  Sender: FDA-Public Use
  Company Number: KAMADA LTD MFR # 40707

PATIENT
  Age: 34 Year
  Sex: Female
  Weight: 91.17 kg

DRUGS (1)
  1. GLASSIA [Suspect]
     Indication: ALPHA-1 ANTI-TRYPSIN DEFICIENCY
     Dosage: 60MG/KG +/- 10% WEEKLY IV
     Route: 042
     Dates: start: 20130807

REACTIONS (4)
  - Infusion related reaction [None]
  - Pallor [None]
  - Nausea [None]
  - Dyspnoea [None]
